FAERS Safety Report 5827150-7 (Version None)
Quarter: 2008Q3

REPORT INFORMATION
  Report Type: 
  Country: None (occurrence: None)
  Receive Date: 20080729
  Receipt Date: 20080729
  Transmission Date: 20090109
  Serious: Yes (Life-Threatening, Hospitalization)
  Sender: FDA-Public Use
  Company Number: None

PATIENT
  Age: 71 Year
  Sex: Female
  Weight: 74.8435 kg

DRUGS (1)
  1. DIGITEK .125MG [Suspect]
     Indication: ATRIAL FIBRILLATION
     Dosage: 1 TAB DAILY PO
     Route: 048
     Dates: start: 20070914, end: 20080720

REACTIONS (4)
  - ATRIOVENTRICULAR BLOCK FIRST DEGREE [None]
  - CARDIAC FAILURE CONGESTIVE [None]
  - CONVULSION [None]
  - NAUSEA [None]
